FAERS Safety Report 4840306-5 (Version None)
Quarter: 2005Q4

REPORT INFORMATION
  Report Type: 
  Country: None (occurrence: None)
  Receive Date: 20051021
  Receipt Date: 20050915
  Transmission Date: 20060501
  Serious: Yes (Other)
  Sender: FDA-Public Use
  Company Number: 2005134979

PATIENT
  Sex: Male
  Weight: 102.5129 kg

DRUGS (10)
  1. INSPRA [Suspect]
     Indication: CARDIAC FAILURE CONGESTIVE
     Dosage: SEE IMAGE
     Route: 048
     Dates: start: 20050701
  2. INSPRA [Suspect]
     Indication: CARDIAC FAILURE CONGESTIVE
     Dosage: SEE IMAGE
     Route: 048
     Dates: start: 20050914
  3. LASIX [Suspect]
     Dosage: 80 MG (80 MG, QD) ORAL
     Route: 048
     Dates: start: 20000101
  4. ZAROXOLYN [Suspect]
     Indication: CARDIAC FAILURE CONGESTIVE
     Dosage: 2.5 MG (QD), ORAL
     Route: 048
     Dates: start: 20010101
  5. ALDACTONE [Concomitant]
  6. SYNTHROID [Concomitant]
  7. AMILORIDE [Concomitant]
  8. AMARYL [Concomitant]
  9. POTASSIUM [Concomitant]
  10. DIGOXIN [Concomitant]

REACTIONS (5)
  - ARRHYTHMIA [None]
  - BLOOD POTASSIUM DECREASED [None]
  - FATIGUE [None]
  - PRURITUS [None]
  - SKIN REACTION [None]
